FAERS Safety Report 12629324 (Version 2)
Quarter: 2016Q3

REPORT INFORMATION
  Report Type: Spontaneous
  Country: ES (occurrence: ES)
  Receive Date: 20160808
  Receipt Date: 20160823
  Transmission Date: 20161109
  Serious: Yes (Other)
  Sender: FDA-Public Use
  Company Number: ES-AUROBINDO-AUR-APL-2016-10100

PATIENT

DRUGS (4)
  1. FLECAINIDE [Suspect]
     Active Substance: FLECAINIDE
     Indication: SINUS RHYTHM
     Dosage: 50 MG/12 H
     Route: 065
  2. BISOPROLOL [Interacting]
     Active Substance: BISOPROLOL
     Indication: PRODUCT USED FOR UNKNOWN INDICATION
     Dosage: 2.5 MG/12 H
  3. HYDROXYZINE [Interacting]
     Active Substance: HYDROXYZINE\HYDROXYZINE HYDROCHLORIDE
     Indication: RASH
     Dosage: 25 MG/24 H
     Route: 065
  4. LORATADINE. [Interacting]
     Active Substance: LORATADINE
     Indication: RASH
     Dosage: 10 MG/24 H
     Route: 065

REACTIONS (5)
  - Electrocardiogram QT prolonged [Recovered/Resolved]
  - Torsade de pointes [Recovered/Resolved]
  - Cardiac arrest [Recovered/Resolved]
  - Ventricular fibrillation [Recovered/Resolved]
  - Drug interaction [Recovered/Resolved]
